FAERS Safety Report 7811080-5 (Version None)
Quarter: 2011Q4

REPORT INFORMATION
  Report Type: 
  Country: None (occurrence: None)
  Receive Date: 20111011
  Receipt Date: 20110930
  Transmission Date: 20120403
  Serious: Yes (Other)
  Sender: FDA-Public Use
  Company Number: LEO-2011-00750

PATIENT
  Age: 54 Year
  Sex: Male
  Weight: 70 kg

DRUGS (4)
  1. NEXIUM [Concomitant]
  2. ACETAMINOPHEN [Concomitant]
  3. VOLTAREN [Concomitant]
  4. INNOHEP [Suspect]
     Indication: POSTOPERATIVE CARE
     Dosage: SUBCUTANEOUS
     Route: 058
     Dates: start: 20110802

REACTIONS (2)
  - DEEP VEIN THROMBOSIS [None]
  - PHLEBITIS [None]
